FAERS Safety Report 7906286-0 (Version None)
Quarter: 2011Q4

REPORT INFORMATION
  Report Type: 
  Country: None (occurrence: None)
  Receive Date: 20111110
  Receipt Date: 20111102
  Transmission Date: 20120403
  Serious: Yes (Other)
  Sender: FDA-Public Use
  Company Number: US-BAYER-2011-106684

PATIENT
  Age: 29 Year
  Sex: Female

DRUGS (2)
  1. YASMIN [Suspect]
     Route: 048
  2. YAZ [Suspect]
     Route: 048

REACTIONS (3)
  - INJURY [None]
  - CHOLECYSTECTOMY [None]
  - EMOTIONAL DISTRESS [None]
